FAERS Safety Report 6850067-6 (Version None)
Quarter: 2010Q3

REPORT INFORMATION
  Report Type: 
  Country: None (occurrence: None)
  Receive Date: 20100716
  Receipt Date: 20071212
  Transmission Date: 20110219
  Serious: No
  Sender: FDA-Public Use
  Company Number: US-PFIZER INC-2007084811

PATIENT
  Sex: Male
  Weight: 90.909 kg

DRUGS (11)
  1. CHANTIX [Suspect]
     Indication: SMOKING CESSATION THERAPY
     Route: 048
     Dates: start: 20070912
  2. XANAX [Concomitant]
  3. DESYREL [Concomitant]
  4. VICODIN [Concomitant]
  5. KLONOPIN [Concomitant]
     Indication: AFFECTIVE DISORDER
  6. FLEXERIL [Concomitant]
  7. FLORINEF [Concomitant]
     Indication: BLOOD PRESSURE ABNORMAL
  8. REGLAN [Concomitant]
  9. IMITREX [Concomitant]
     Indication: MIGRAINE
  10. ABILIFY [Concomitant]
     Indication: AFFECTIVE DISORDER
  11. PAXIL [Concomitant]
     Indication: AFFECTIVE DISORDER

REACTIONS (2)
  - HEADACHE [None]
  - VOMITING [None]
